FAERS Safety Report 12557333 (Version 1)
Quarter: 2016Q3

REPORT INFORMATION
  Report Type: Spontaneous
  Country: US (occurrence: US)
  Receive Date: 20160714
  Receipt Date: 20160714
  Transmission Date: 20161109
  Serious: No
  Sender: FDA-Public Use
  Company Number: US-GLAXOSMITHKLINE-US2016100173

PATIENT
  Sex: Female

DRUGS (1)
  1. VOLTAREN [Suspect]
     Active Substance: DICLOFENAC SODIUM
     Indication: UPPER LIMB FRACTURE
     Dosage: UNK
     Route: 061
     Dates: start: 201601

REACTIONS (4)
  - Somnolence [Not Recovered/Not Resolved]
  - Product use issue [Unknown]
  - Incorrect drug administration duration [Unknown]
  - Drug administered at inappropriate site [Unknown]
